FAERS Safety Report 9331495 (Version 3)
Quarter: 2013Q3

REPORT INFORMATION
  Report Type: Spontaneous
  Country: US (occurrence: US)
  Receive Date: 20130605
  Receipt Date: 20130705
  Transmission Date: 20140515
  Serious: No
  Sender: FDA-Public Use
  Company Number: US-PFIZER INC-2013168373

PATIENT
  Age: 61 Year
  Sex: Male

DRUGS (1)
  1. XALKORI [Suspect]
     Indication: LUNG NEOPLASM MALIGNANT
     Dosage: 500 MG, UNK
     Dates: start: 20130312, end: 201305

REACTIONS (2)
  - Disease progression [Unknown]
  - Lung neoplasm malignant [Unknown]
